FAERS Safety Report 19056089 (Version 1)
Quarter: 2021Q1

REPORT INFORMATION
  Report Type: Report from Study
  Country: US (occurrence: US)
  Receive Date: 20210325
  Receipt Date: 20210325
  Transmission Date: 20210420
  Serious: Yes (Hospitalization, Other)
  Sender: FDA-Public Use
  Company Number: US-B.I. PHARMACEUTICALS,INC./RIDGEFIELD-2020-BI-038142

PATIENT
  Age: 75 Year
  Sex: Female
  Weight: 57 kg

DRUGS (3)
  1. OMEPRAZOLE. [Concomitant]
     Active Substance: OMEPRAZOLE
     Indication: RADIATION PNEUMONITIS
     Route: 065
     Dates: start: 20200124, end: 20200319
  2. PREDNISONE. [Concomitant]
     Active Substance: PREDNISONE
     Indication: RADIATION PNEUMONITIS
     Route: 065
     Dates: start: 20200124, end: 20200319
  3. BIBF 1120 [Suspect]
     Active Substance: NINTEDANIB
     Indication: RADIATION PNEUMONITIS
     Route: 048
     Dates: start: 20200124, end: 20200226

REACTIONS (1)
  - Deep vein thrombosis [Recovered/Resolved]

NARRATIVE: CASE EVENT DATE: 20200227
